FAERS Safety Report 6222035-9 (Version None)
Quarter: 2009Q2

REPORT INFORMATION
  Report Type: 
  Country: None (occurrence: None)
  Receive Date: 20090611
  Receipt Date: 20071030
  Transmission Date: 20091009
  Serious: Yes (Other)
  Sender: FDA-Public Use
  Company Number: US-ASTRAZENECA-2007UW09633

PATIENT
  Age: 22150 Day
  Sex: Female
  Weight: 59.4 kg

DRUGS (17)
  1. SEROQUEL [Suspect]
     Indication: DEPRESSION
     Route: 048
     Dates: start: 20020506, end: 20041101
  2. SEROQUEL [Suspect]
     Indication: BIPOLAR DISORDER
     Route: 048
     Dates: start: 20020506, end: 20041101
  3. SEROQUEL [Suspect]
     Indication: SCHIZOPHRENIA
     Route: 048
     Dates: start: 20020506, end: 20041101
  4. SEROQUEL [Suspect]
     Indication: PSYCHOTIC DISORDER
     Route: 048
     Dates: start: 20020506, end: 20041101
  5. SEROQUEL [Suspect]
     Route: 048
     Dates: start: 20021008
  6. SEROQUEL [Suspect]
     Route: 048
     Dates: start: 20021008
  7. SEROQUEL [Suspect]
     Route: 048
     Dates: start: 20021008
  8. SEROQUEL [Suspect]
     Route: 048
     Dates: start: 20021008
  9. CLOZARIL [Concomitant]
  10. NAVANE [Concomitant]
  11. TRILAFON/TRIAVIL [Concomitant]
  12. ZETIA [Concomitant]
     Route: 048
  13. CELEXA [Concomitant]
     Dates: start: 20021008
  14. PROZAC [Concomitant]
     Dates: start: 20021008
  15. PAXIL [Concomitant]
     Dates: start: 20021008
  16. ZOLOFT [Concomitant]
     Dates: start: 20021008
  17. ISOSORBIDE DN [Concomitant]
     Dates: start: 20010117

REACTIONS (5)
  - DIABETES MELLITUS [None]
  - DIABETIC NEUROPATHY [None]
  - FALL [None]
  - RENAL FAILURE CHRONIC [None]
  - TYPE 2 DIABETES MELLITUS [None]
